FAERS Safety Report 9058258 (Version 1)
Quarter: 2013Q1

REPORT INFORMATION
  Report Type: Spontaneous
  Country: US (occurrence: None)
  Receive Date: 20130204
  Receipt Date: 20130204
  Transmission Date: 20140127
  Serious: Yes (Life-Threatening, Hospitalization)
  Sender: FDA-Public Use
  Company Number: None

PATIENT
  Age: 58 Year
  Sex: Female
  Weight: 69.85 kg

DRUGS (2)
  1. SYMBICORT 160/4.5 MCG ASTRAZENECA FRANCE [Suspect]
     Dosage: 2 PUFFS 2 X DAY INHALED AEROSOL
     Route: 055
     Dates: start: 20121205
  2. DOXYCYCLINE 100MG WATSON LABS [Suspect]
     Route: 048
     Dates: start: 201211

REACTIONS (4)
  - Obstructive airways disorder [None]
  - Suffocation feeling [None]
  - Rash [None]
  - Mucosal discolouration [None]
